FAERS Safety Report 7147684 (Version 1)
Quarter: 2020Q3

REPORT INFORMATION
  Report Type: Report from Study
  Country: FR (occurrence: FR)
  Receive Date: 20091013
  Receipt Date: 20091013
  Transmission Date: 20201105
  Serious: Yes (Hospitalization)
  Sender: FDA-Public Use
  Company Number: FR-WYE-H10073209

PATIENT
  Age: 79 Year
  Sex: Female
  Weight: 47.5 kg

DRUGS (2)
  1. INOTUZUMAB OZOGAMICIN\RITUXIMAB [Suspect]
     Active Substance: INOTUZUMAB OZOGAMICIN\RITUXIMAB
     Indication: NON-HODGKIN^S LYMPHOMA
     Dosage: NOT PROVIDED
     Route: 042
     Dates: start: 20090108
  2. INOTUZUMAB OZOGAMICIN [Suspect]
     Active Substance: INOTUZUMAB OZOGAMICIN
     Indication: NON-HODGKIN^S LYMPHOMA
     Route: 042
     Dates: start: 20090108

REACTIONS (3)
  - General physical health deterioration [Not Recovered/Not Resolved]
  - Herpes zoster [Recovered/Resolved]
  - Fatigue [Not Recovered/Not Resolved]

NARRATIVE: CASE EVENT DATE: 20090628
